FAERS Safety Report 9011409 (Version 1)
Quarter: 2013Q1

REPORT INFORMATION
  Report Type: Spontaneous
  Country: US (occurrence: US)
  Receive Date: 20130108
  Receipt Date: 20130108
  Transmission Date: 20140127
  Serious: Yes (Other)
  Sender: FDA-Public Use
  Company Number: US-VERTEX PHARMACEUTICALS INC.-2013-000229

PATIENT
  Sex: Female
  Weight: 70.3 kg

DRUGS (4)
  1. INCIVEK [Suspect]
     Indication: HEPATITIS C
     Dosage: 750 MG, TID
     Route: 048
     Dates: start: 20120930, end: 20121223
  2. RIBAVIRIN [Suspect]
     Indication: HEPATITIS C
     Dosage: UNK, QD
     Route: 048
     Dates: start: 20120930, end: 201212
  3. RIBAVIRIN [Suspect]
     Dosage: UNK
     Route: 048
     Dates: start: 201212
  4. PEGASYS [Suspect]
     Indication: HEPATITIS C
     Dosage: UNK, QW
     Route: 058
     Dates: start: 20120930

REACTIONS (2)
  - Red blood cell count decreased [Recovered/Resolved]
  - Nasopharyngitis [Recovered/Resolved]
